FAERS Safety Report 6567085-8 (Version None)
Quarter: 2010Q1

REPORT INFORMATION
  Report Type: 
  Country: None (occurrence: None)
  Receive Date: 20100202
  Receipt Date: 20100128
  Transmission Date: 20100710
  Serious: Yes (Life-Threatening)
  Sender: FDA-Public Use
  Company Number: AU-RB-001397-10

PATIENT
  Sex: Female

DRUGS (7)
  1. NORSPAN 5 [Suspect]
     Indication: PAIN
     Dosage: 5 MCG/HR
     Route: 065
     Dates: start: 20060615
  2. LEVOTHYROXINE SODIUM [Concomitant]
     Indication: DRUG USE FOR UNKNOWN INDICATION
     Dosage: DOSING INFORMATION UNKNOWN.
     Route: 065
  3. GEMFIBROZIL [Concomitant]
     Indication: DRUG USE FOR UNKNOWN INDICATION
     Dosage: DOSING INFORMATION UNKNOWN.
     Route: 065
  4. PANAMAX [Concomitant]
     Indication: DRUG USE FOR UNKNOWN INDICATION
     Dosage: DOSING INFORMATION UNKNOWN.
     Route: 065
  5. GLUCOSAMINE NOS [Concomitant]
     Indication: DRUG USE FOR UNKNOWN INDICATION
     Dosage: DOSING INFORMATION UNKNOWN.
     Route: 065
  6. ATORVASTATIN [Concomitant]
     Indication: DRUG USE FOR UNKNOWN INDICATION
     Dosage: DOSING INFORMATION UNKNOWN.
     Route: 065
  7. ENDEP [Concomitant]
     Indication: DRUG USE FOR UNKNOWN INDICATION
     Dosage: DOSING INFORMATION UNKNOWN.
     Route: 065

REACTIONS (3)
  - HALLUCINATION, AUDITORY [None]
  - PSYCHOTIC DISORDER [None]
  - SUICIDAL IDEATION [None]
